FAERS Safety Report 12137885 (Version 1)
Quarter: 2016Q1

REPORT INFORMATION
  Report Type: Spontaneous
  Country: CH (occurrence: CH)
  Receive Date: 20160302
  Receipt Date: 20160302
  Transmission Date: 20160526
  Serious: Yes (Hospitalization)
  Sender: FDA-Public Use
  Company Number: CH-ASTRAZENECA-2016SE19193

PATIENT
  Sex: Female

DRUGS (16)
  1. METOLAZONE. [Suspect]
     Active Substance: METOLAZONE
     Route: 048
     Dates: start: 20160121, end: 20160124
  2. ARANESP [Suspect]
     Active Substance: DARBEPOETIN ALFA
     Route: 058
     Dates: start: 20151228, end: 20160125
  3. IPRAMOL [Suspect]
     Active Substance: ALBUTEROL SULFATE\IPRATROPIUM BROMIDE
     Route: 055
     Dates: start: 20160108, end: 20160125
  4. PIPERACILINA, TAZOBACTAM [Concomitant]
     Route: 041
     Dates: start: 20160108, end: 20160115
  5. VANCOCIN [Suspect]
     Active Substance: VANCOMYCIN HYDROCHLORIDE
     Route: 041
     Dates: start: 20160108, end: 20160119
  6. DAFALGAN [Concomitant]
     Active Substance: ACETAMINOPHEN
     Route: 048
     Dates: start: 20151217, end: 20160125
  7. NEXIUM [Suspect]
     Active Substance: ESOMEPRAZOLE MAGNESIUM
     Route: 048
     Dates: start: 20151218, end: 20160125
  8. LASIX [Suspect]
     Active Substance: FUROSEMIDE
     Route: 048
     Dates: start: 20151217, end: 20160125
  9. TORASEMIDE [Suspect]
     Active Substance: TORSEMIDE
     Route: 048
     Dates: start: 20151231, end: 20160118
  10. ALKERAN [Suspect]
     Active Substance: MELPHALAN
     Route: 048
     Dates: start: 20160120, end: 20160123
  11. BACTRIM [Suspect]
     Active Substance: SULFAMETHOXAZOLE\TRIMETHOPRIM
     Route: 048
     Dates: start: 20160108, end: 20160125
  12. CALCIPARINE [Suspect]
     Active Substance: HEPARIN CALCIUM
     Route: 058
     Dates: start: 20151224, end: 20160125
  13. VELCADE [Suspect]
     Active Substance: BORTEZOMIB
     Route: 041
     Dates: start: 20160108, end: 20160122
  14. BACTRIM [Suspect]
     Active Substance: SULFAMETHOXAZOLE\TRIMETHOPRIM
     Dosage: 1 DF, TWO TIMES A WEEK
     Route: 048
     Dates: start: 20151224, end: 20160108
  15. TAMIFLU [Concomitant]
     Active Substance: OSELTAMIVIR PHOSPHATE
     Route: 048
     Dates: start: 20160112, end: 20160116
  16. VALTREX [Suspect]
     Active Substance: VALACYCLOVIR HYDROCHLORIDE
     Route: 048
     Dates: start: 20151218, end: 20160125

REACTIONS (4)
  - Toxic epidermal necrolysis [Recovering/Resolving]
  - Pneumonia respiratory syncytial viral [Recovering/Resolving]
  - Stevens-Johnson syndrome [Recovering/Resolving]
  - Pneumonia influenzal [Recovering/Resolving]
